FAERS Safety Report 14685428 (Version 4)
Quarter: 2018Q3

REPORT INFORMATION
  Report Type: Spontaneous
  Country: US (occurrence: US)
  Receive Date: 20180327
  Receipt Date: 20180904
  Transmission Date: 20181010
  Serious: Yes (Hospitalization)
  Sender: FDA-Public Use
  Company Number: US-DSJP-DSU-2017-141181

PATIENT

DRUGS (3)
  1. BENICAR [Suspect]
     Active Substance: OLMESARTAN MEDOXOMIL
     Dosage: 20 MG, QD
     Route: 048
     Dates: start: 20100325, end: 20110630
  2. BENICAR HCT [Suspect]
     Active Substance: HYDROCHLOROTHIAZIDE\OLMESARTAN MEDOXOMIL
     Indication: HYPERTENSION
     Dosage: 40/12.5 MG, QD
     Route: 048
     Dates: start: 20070125, end: 20110630
  3. BENICAR [Suspect]
     Active Substance: OLMESARTAN MEDOXOMIL
     Indication: HYPERTENSION
     Dosage: 40 MG, UNK
     Dates: start: 20050101, end: 20070125

REACTIONS (5)
  - Infectious colitis [Recovering/Resolving]
  - Sprue-like enteropathy [Recovering/Resolving]
  - Hypotension [Recovered/Resolved]
  - Gastroenteritis viral [Recovering/Resolving]
  - Cholecystitis [Unknown]

NARRATIVE: CASE EVENT DATE: 20050101
